FAERS Safety Report 20073414 (Version 1)
Quarter: 2021Q4

REPORT INFORMATION
  Report Type: Spontaneous
  Country: ES (occurrence: ES)
  Receive Date: 20211116
  Receipt Date: 20211116
  Transmission Date: 20220303
  Serious: Yes (Hospitalization, Other)
  Sender: FDA-Public Use
  Company Number: ES-SA-SAC20210308000148

PATIENT
  Age: 63 Year
  Sex: Female

DRUGS (1)
  1. MYOZYME [Suspect]
     Active Substance: ALGLUCOSIDASE ALFA
     Indication: Glycogen storage disease type II
     Dosage: 1115 UNK, BIM
     Route: 041
     Dates: start: 20200428

REACTIONS (8)
  - Aspiration [Unknown]
  - Pleural effusion [Unknown]
  - Back pain [Unknown]
  - Gait disturbance [Recovered/Resolved]
  - Fear-related avoidance of activities [Recovered/Resolved]
  - Diaphragmatic disorder [Unknown]
  - Oxygen saturation decreased [Unknown]
  - Dizziness [Recovered/Resolved]

NARRATIVE: CASE EVENT DATE: 20210222
